FAERS Safety Report 6755846-1 (Version None)
Quarter: 2010Q2

REPORT INFORMATION
  Report Type: 
  Country: None (occurrence: None)
  Receive Date: 20100604
  Receipt Date: 20100526
  Transmission Date: 20101027
  Serious: Yes (Hospitalization)
  Sender: FDA-Public Use
  Company Number: US-BAYER-201023970NA

PATIENT
  Sex: Female

DRUGS (1)
  1. AVELOX [Suspect]
     Indication: STAPHYLOCOCCAL INFECTION
     Route: 065
     Dates: end: 20100526

REACTIONS (1)
  - LOCALISED INFECTION [None]
